FAERS Safety Report 4345376-9 (Version None)
Quarter: 2004Q2

REPORT INFORMATION
  Report Type: 
  Country: None (occurrence: None)
  Receive Date: 20040423
  Receipt Date: 20040406
  Transmission Date: 20050107
  Serious: Yes (Other)
  Sender: FDA-Public Use
  Company Number: US-BRISTOL-MYERS SQUIBB COMPANY-12551594

PATIENT
  Age: 59 Year
  Sex: Female

DRUGS (9)
  1. CARBOPLATIN [Suspect]
     Indication: OVARIAN CANCER
     Dosage: CYCLE 1: 04-JUN-2003
     Route: 042
     Dates: start: 20030828, end: 20030828
  2. PACLITAXEL [Suspect]
     Indication: OVARIAN CANCER
     Dosage: CYCLE 1: 04-JUN-2003
     Route: 042
     Dates: start: 20030428, end: 20030828
  3. INTERFERON GAMMA [Suspect]
     Indication: OVARIAN CANCER
     Dosage: CYCLE 1: 04-JUN-2003
     Route: 058
     Dates: start: 20030828, end: 20030908
  4. LOTREL [Concomitant]
     Dates: start: 20030101
  5. DIOVAN [Concomitant]
     Dates: start: 19880101
  6. ATIVAN [Concomitant]
     Dates: start: 20030604
  7. COMPAZINE [Concomitant]
     Dates: start: 20030604
  8. LEXAPRO [Concomitant]
     Dates: start: 20030626
  9. COUMADIN [Concomitant]
     Dates: start: 20030604

REACTIONS (3)
  - FEBRILE NEUTROPENIA [None]
  - NEUTROPENIA [None]
  - UROSEPSIS [None]
